FAERS Safety Report 13890930 (Version 2)
Quarter: 2017Q3

REPORT INFORMATION
  Report Type: Spontaneous
  Country: JP (occurrence: JP)
  Receive Date: 20170822
  Receipt Date: 20170831
  Transmission Date: 20171127
  Serious: Yes (Hospitalization)
  Sender: FDA-Public Use
  Company Number: JP-ROCHE-1982291

PATIENT
  Age: 29 Year
  Sex: Male
  Weight: 43 kg

DRUGS (5)
  1. ONCOVIN [Suspect]
     Active Substance: VINCRISTINE SULFATE
     Indication: PRIMARY MEDIASTINAL LARGE B-CELL LYMPHOMA
     Route: 042
     Dates: start: 201204
  2. ENDOXAN [Suspect]
     Active Substance: CYCLOPHOSPHAMIDE
     Indication: PRIMARY MEDIASTINAL LARGE B-CELL LYMPHOMA
     Route: 042
     Dates: start: 201204
  3. PREDONINE [Suspect]
     Active Substance: PREDNISOLONE
     Indication: PRIMARY MEDIASTINAL LARGE B-CELL LYMPHOMA
     Route: 048
     Dates: start: 201204
  4. RITUXAN [Suspect]
     Active Substance: RITUXIMAB
     Indication: PRIMARY MEDIASTINAL LARGE B-CELL LYMPHOMA
     Route: 041
     Dates: start: 201204
  5. ADRIACIN [Suspect]
     Active Substance: DOXORUBICIN HYDROCHLORIDE
     Indication: PRIMARY MEDIASTINAL LARGE B-CELL LYMPHOMA
     Route: 042
     Dates: start: 201204

REACTIONS (1)
  - Oesophageal stenosis [Recovering/Resolving]

NARRATIVE: CASE EVENT DATE: 201304
